FAERS Safety Report 18007040 (Version 2)
Quarter: 2020Q3

REPORT INFORMATION
  Report Type: Spontaneous
  Country: CA (occurrence: CA)
  Receive Date: 20200710
  Receipt Date: 20200720
  Transmission Date: 20201103
  Serious: Yes (Other)
  Sender: FDA-Public Use
  Company Number: CA-PFIZER INC-2020032520

PATIENT
  Age: 56 Year
  Sex: Female

DRUGS (11)
  1. JAMP VITAMIN D [Concomitant]
     Active Substance: CHOLECALCIFEROL
     Dosage: 800 IU, UNK
     Route: 065
  2. JAMP FOLIC ACID [Concomitant]
     Dosage: 5 MG, UNK
     Route: 065
  3. JAMP PREGABALIN [Concomitant]
     Dosage: 75 MG, UNK
     Route: 065
  4. APO?HYDROXYQUINE [Concomitant]
     Active Substance: HYDROXYCHLOROQUINE SULFATE
     Dosage: 200 MG, UNK
     Route: 065
  5. MCAL [Concomitant]
     Dosage: 500 MG, UNK
     Route: 065
  6. TYLENOL [Concomitant]
     Active Substance: ACETAMINOPHEN
     Dosage: UNK
     Route: 065
  7. METHOTREXATE. [Concomitant]
     Active Substance: METHOTREXATE
     Dosage: 20 MG, UNK
     Route: 065
  8. CELECOXIB. [Concomitant]
     Active Substance: CELECOXIB
     Dosage: 100 MG, UNK
     Route: 065
  9. PANTOPRAZOLE [Concomitant]
     Active Substance: PANTOPRAZOLE
     Dosage: 40 MG, UNK
     Route: 065
  10. XELJANZ [Suspect]
     Active Substance: TOFACITINIB CITRATE
     Indication: RHEUMATOID ARTHRITIS
     Dosage: 5 MG, 2X/DAY (BID)
     Route: 048
     Dates: start: 201911
  11. SULFASALAZINE. [Concomitant]
     Active Substance: SULFASALAZINE
     Dosage: 500 MG, UNK
     Route: 065

REACTIONS (3)
  - Impaired work ability [Unknown]
  - Migraine [Unknown]
  - Drug ineffective [Recovering/Resolving]
